FAERS Safety Report 8474223-9 (Version None)
Quarter: 2012Q2

REPORT INFORMATION
  Report Type: 
  Country: None (occurrence: None)
  Receive Date: 20120622
  Receipt Date: 20120622
  Transmission Date: 20120825
  Serious: No
  Sender: FDA-Public Use
  Company Number: None

PATIENT
  Age: 88 Year
  Sex: Male
  Weight: 79.8331 kg

DRUGS (1)
  1. SPIRONOLACTONE [Suspect]
     Indication: CARDIAC DISORDER
     Dosage: 25 MG 1 DAILY PO
     Route: 048
     Dates: start: 20120609, end: 20120617

REACTIONS (3)
  - ASTHENIA [None]
  - FATIGUE [None]
  - DIARRHOEA [None]
